FAERS Safety Report 10226084 (Version 1)
Quarter: 2014Q2

REPORT INFORMATION
  Report Type: Spontaneous
  Country: US (occurrence: US)
  Receive Date: 20140609
  Receipt Date: 20140609
  Transmission Date: 20141212
  Serious: Yes (Other)
  Sender: FDA-Public Use
  Company Number: US-ASTELLAS-2014US003631

PATIENT
  Sex: Male
  Weight: 102 kg

DRUGS (3)
  1. XTANDI [Suspect]
     Indication: PROSTATE CANCER
     Route: 048
     Dates: start: 201302
  2. LUPRON [Concomitant]
     Indication: PROSTATE CANCER
     Dosage: 1 INJECTION EVERY 3 MONTHS
     Route: 042
     Dates: start: 2008
  3. EFFIENT [Concomitant]
     Indication: CORONARY ARTERIAL STENT INSERTION
     Route: 048
     Dates: start: 2005

REACTIONS (2)
  - Memory impairment [Unknown]
  - Weight increased [Unknown]
